FAERS Safety Report 5870550-X (Version None)
Quarter: 2008Q3

REPORT INFORMATION
  Report Type: 
  Country: None (occurrence: None)
  Receive Date: 20080904
  Receipt Date: 20080714
  Transmission Date: 20090109
  Serious: Yes (Hospitalization)
  Sender: FDA-Public Use
  Company Number: US-PURDUE-USA_2008_0034470

PATIENT
  Sex: Male

DRUGS (9)
  1. OXYCONTIN [Suspect]
     Indication: ARTHRALGIA
     Dosage: 20 MG, TID
     Dates: start: 20010501
  2. VIAGRA [Concomitant]
     Indication: DRUG USE FOR UNKNOWN INDICATION
     Dosage: 100 MG, UNK
  3. VIOXX [Concomitant]
     Indication: DRUG USE FOR UNKNOWN INDICATION
     Dosage: 12.5 MG, UNK
  4. ULTRAM [Concomitant]
     Indication: DRUG USE FOR UNKNOWN INDICATION
     Dosage: 50 MG, UNK
  5. NEXIUM [Concomitant]
     Indication: DRUG USE FOR UNKNOWN INDICATION
     Dosage: 40 MG, UNK
  6. PRILOSEC [Concomitant]
     Indication: DRUG USE FOR UNKNOWN INDICATION
     Dosage: 20 MG, UNK
  7. REMERON [Concomitant]
     Indication: DRUG USE FOR UNKNOWN INDICATION
     Dosage: 15 MG, UNK
  8. MOBIC [Concomitant]
     Indication: DRUG USE FOR UNKNOWN INDICATION
     Dosage: 7.5 MG, UNK
  9. ZIAC [Concomitant]
     Indication: DRUG USE FOR UNKNOWN INDICATION
     Dosage: 10 MG, UNK

REACTIONS (8)
  - ACUTE CORONARY SYNDROME [None]
  - CARDIAC DISORDER [None]
  - GENERAL PHYSICAL HEALTH DETERIORATION [None]
  - INSOMNIA [None]
  - MEMORY IMPAIRMENT [None]
  - MOOD ALTERED [None]
  - MOOD SWINGS [None]
  - SEXUAL DYSFUNCTION [None]
